FAERS Safety Report 9764476 (Version 1)
Quarter: 2013Q4

REPORT INFORMATION
  Report Type: Spontaneous
  Country: US (occurrence: US)
  Receive Date: 20131217
  Receipt Date: 20131217
  Transmission Date: 20140711
  Serious: No
  Sender: FDA-Public Use
  Company Number: US-BIOGENIDEC-2013BI120630

PATIENT
  Sex: Female

DRUGS (11)
  1. AVONEX [Suspect]
     Indication: MULTIPLE SCLEROSIS
     Route: 030
     Dates: start: 20121129
  2. ALLEGRA-D 24 HOUR [Concomitant]
  3. BIOTIN MAXIMUM STRENGTH [Concomitant]
  4. DICLOFENAC SODIUM [Concomitant]
  5. GABAPENTIN [Concomitant]
  6. OMEGA-3 FISH OIL EX ST [Concomitant]
  7. SIMVASTATIN [Concomitant]
  8. TOPAMAX SPRINKLE [Concomitant]
  9. TRAMADOL HCL [Concomitant]
  10. VITAMIN E BLEND [Concomitant]
  11. WARFARIN SODIUM [Concomitant]

REACTIONS (1)
  - Neuropathy peripheral [Unknown]
